FAERS Safety Report 4718283-7 (Version None)
Quarter: 2005Q3

REPORT INFORMATION
  Report Type: 
  Country: None (occurrence: None)
  Receive Date: 20050719
  Receipt Date: 20050222
  Transmission Date: 20060218
  Serious: Yes (Other)
  Sender: FDA-Public Use
  Company Number: 2005036698

PATIENT
  Sex: Female
  Weight: 120.2032 kg

DRUGS (6)
  1. CELEBREX [Suspect]
     Indication: OSTEOARTHRITIS
     Dosage: 200 MG (200 MG, 1 IN 1 D),
     Dates: end: 20050201
  2. VALSARTAN [Suspect]
     Indication: HYPERTENSION
     Dosage: 320 MG (UNK, 1 IN 2 D), ORAL
     Route: 048
  3. DIURETICS (DIURETICS) [Concomitant]
  4. CLONIDINE [Concomitant]
  5. AMLODIPINE BESYLATE [Concomitant]
  6. MONTELUKAST SODIUM (MONTELUKAST SODIUM) [Concomitant]

REACTIONS (5)
  - CEREBROVASCULAR ACCIDENT [None]
  - HYPERTENSION [None]
  - OEDEMA PERIPHERAL [None]
  - RASH PRURITIC [None]
  - VISUAL DISTURBANCE [None]
